FAERS Safety Report 8914488 (Version 1)
Quarter: 2012Q4

REPORT INFORMATION
  Report Type: 
  Country: CA (occurrence: CA)
  Receive Date: 20121119
  Receipt Date: 20121119
  Transmission Date: 20130627
  Serious: Yes (Hospitalization)
  Sender: FDA-Public Use
  Company Number: PHBS2001CA02297

PATIENT
  Sex: Male

DRUGS (5)
  1. EXELON [Suspect]
     Indication: DEMENTIA ALZHEIMER^S TYPE
     Dosage: 6 mg, BID
     Route: 048
     Dates: start: 20001016
  2. EXELON [Suspect]
     Dosage: 6 mg, BID
     Route: 048
     Dates: start: 20010107, end: 20010219
  3. EXELON [Suspect]
     Dosage: 6 mg, BID
     Route: 048
     Dates: start: 20010224
  4. TYLENOL [Concomitant]
  5. GLUCOSAMINE [Concomitant]

REACTIONS (6)
  - Nausea [Recovering/Resolving]
  - Vomiting [Recovering/Resolving]
  - Diarrhoea [Recovering/Resolving]
  - Agitation [Recovering/Resolving]
  - Nightmare [Recovered/Resolved]
  - Confusional state [Recovered/Resolved]
